FAERS Safety Report 5629666-5 (Version None)
Quarter: 2008Q1

REPORT INFORMATION
  Report Type: 
  Country: None (occurrence: None)
  Receive Date: 20080218
  Receipt Date: 20080208
  Transmission Date: 20080703
  Serious: Yes (Other)
  Sender: FDA-Public Use
  Company Number: B0507081A

PATIENT
  Age: 48 Year
  Sex: Female
  Weight: 40.1 kg

DRUGS (16)
  1. ARIXTRA [Suspect]
     Indication: THROMBOSIS PROPHYLAXIS
     Dosage: 1.5MG PER DAY
     Route: 058
     Dates: start: 20080130, end: 20080203
  2. LACTEC [Concomitant]
     Dosage: 500ML TWICE PER DAY
     Route: 042
     Dates: start: 20080129, end: 20080129
  3. RASENAZOLIN [Concomitant]
     Indication: INFECTION PROPHYLAXIS
     Dosage: .5G TWICE PER DAY
     Route: 042
     Dates: start: 20080129, end: 20080131
  4. MYSLEE [Concomitant]
     Indication: INSOMNIA
     Dosage: 5MG PER DAY
     Route: 048
  5. CLARITIN REDITABS [Concomitant]
     Indication: PRURITUS
     Dosage: 10MG PER DAY
     Route: 048
  6. RIVOTRIL [Concomitant]
     Dosage: .5MG PER DAY
     Route: 048
  7. PROMAC [Concomitant]
     Indication: GASTRITIS
     Dosage: 75MG TWICE PER DAY
     Route: 048
  8. GASTER D [Concomitant]
     Indication: GASTRITIS
     Dosage: 20MG TWICE PER DAY
     Route: 048
  9. PREDNISOLONE [Concomitant]
     Indication: SYSTEMIC LUPUS ERYTHEMATOSUS
     Dosage: 2MG PER DAY
     Route: 048
  10. BLOPRESS [Concomitant]
     Indication: HYPERTENSION
     Dosage: 4MG PER DAY
     Route: 048
  11. RENAGEL [Concomitant]
     Indication: DIALYSIS
     Dosage: 750MG THREE TIMES PER DAY
     Route: 048
  12. MUCOSTA [Concomitant]
     Indication: GASTRITIS
     Dosage: 10MG THREE TIMES PER DAY
     Route: 048
  13. RISUMIC [Concomitant]
     Indication: GASTRITIS
     Dosage: 10MG TWICE PER DAY
     Route: 048
  14. DOPS (JAPAN) [Concomitant]
     Indication: GASTRITIS
     Dosage: 100MG TWICE PER DAY
     Route: 048
  15. ALLEGRA [Concomitant]
     Indication: PRURITUS
     Dosage: 60MG TWICE PER DAY
     Route: 048
  16. LACTEC [Concomitant]
     Dosage: 500ML PER DAY
     Route: 042
     Dates: start: 20080130, end: 20080130

REACTIONS (16)
  - BLOOD ALBUMIN DECREASED [None]
  - BLOOD ALKALINE PHOSPHATASE INCREASED [None]
  - BLOOD CREATININE INCREASED [None]
  - BLOOD IRON DECREASED [None]
  - BLOOD UREA INCREASED [None]
  - FIBRIN D DIMER INCREASED [None]
  - GAMMA-GLUTAMYLTRANSFERASE INCREASED [None]
  - HAEMATOCRIT DECREASED [None]
  - HAEMOGLOBIN DECREASED [None]
  - INCISION SITE HAEMORRHAGE [None]
  - IRON BINDING CAPACITY TOTAL DECREASED [None]
  - PLATELET COUNT DECREASED [None]
  - PROTEIN TOTAL DECREASED [None]
  - PROTHROMBIN TIME SHORTENED [None]
  - RED BLOOD CELL COUNT DECREASED [None]
  - WHITE BLOOD CELL COUNT DECREASED [None]
